FAERS Safety Report 9878345 (Version 3)
Quarter: 2014Q2

REPORT INFORMATION
  Report Type: Spontaneous
  Country: IT (occurrence: IT)
  Receive Date: 20140206
  Receipt Date: 20140522
  Transmission Date: 20141212
  Serious: Yes (Hospitalization)
  Sender: FDA-Public Use
  Company Number: IT-MYLANLABS-2014S1002075

PATIENT
  Age: 90 Year
  Sex: Female
  Weight: 65 kg

DRUGS (4)
  1. TICLOPIDINE HYDROCHLORIDE [Suspect]
     Indication: PROPHYLAXIS
     Dosage: 1 DF DAILY
     Route: 048
     Dates: start: 20100101, end: 20131105
  2. RYTMONORM [Concomitant]
     Indication: PRODUCT USED FOR UNKNOWN INDICATION
     Dosage: 2 DF
     Route: 048
  3. HIZAAR [Concomitant]
     Indication: HYPERTENSION
     Dosage: .5 DF
     Route: 048
  4. SIMVASTATIN [Concomitant]
     Indication: HYPERCHOLESTEROLAEMIA
     Dosage: 20 MG
     Route: 048

REACTIONS (2)
  - Eyelid haematoma [Recovering/Resolving]
  - Subdural haemorrhage [Recovering/Resolving]
